FAERS Safety Report 4975582-1 (Version None)
Quarter: 2006Q2

REPORT INFORMATION
  Report Type: 
  Country: None (occurrence: None)
  Receive Date: 20060418
  Receipt Date: 20050824
  Transmission Date: 20061013
  Serious: Yes (Hospitalization)
  Sender: FDA-Public Use
  Company Number: DE-BRISTOL-MYERS SQUIBB COMPANY-13319629

PATIENT
  Age: 61 Year
  Sex: Male

DRUGS (12)
  1. ENDOXAN [Suspect]
     Indication: DRUG USE FOR UNKNOWN INDICATION
     Route: 048
     Dates: start: 20010401, end: 20050401
  2. BOSENTAN [Concomitant]
  3. FUROSEMIDE [Concomitant]
  4. SPIRONOLACTONE [Concomitant]
  5. HYDROCHLOROTHIAZIDE [Concomitant]
  6. ALLOPURINOL [Concomitant]
  7. DIGITOXIN TAB [Concomitant]
  8. PREDNISOLONE [Concomitant]
  9. SIOFOR [Concomitant]
  10. MARCUMAR [Concomitant]
  11. HEPARIN [Concomitant]
  12. MESNA [Concomitant]

REACTIONS (1)
  - CYSTITIS HAEMORRHAGIC [None]
